FAERS Safety Report 10973154 (Version 1)
Quarter: 2015Q2

REPORT INFORMATION
  Report Type: Spontaneous
  Country: US (occurrence: US)
  Receive Date: 20150401
  Receipt Date: 20150401
  Transmission Date: 20150821
  Serious: No
  Sender: FDA-Public Use
  Company Number: US-AMGEN-USASP2015030535

PATIENT
  Age: 50 Year
  Sex: Female

DRUGS (1)
  1. ENBREL [Suspect]
     Active Substance: ETANERCEPT
     Indication: RHEUMATOID ARTHRITIS
     Dosage: 25 MG ALTERNATING WITH 50 MG WEEKLY
     Route: 065
     Dates: start: 20121101, end: 201503

REACTIONS (5)
  - Tympanic membrane perforation [Recovered/Resolved]
  - Sinus congestion [Recovered/Resolved]
  - Nasal congestion [Recovered/Resolved]
  - Sinusitis [Recovered/Resolved]
  - Sinus disorder [Recovered/Resolved]

NARRATIVE: CASE EVENT DATE: 20150317
